FAERS Safety Report 5863309-0 (Version None)
Quarter: 2008Q3

REPORT INFORMATION
  Report Type: 
  Country: None (occurrence: None)
  Receive Date: 20080828
  Receipt Date: 20080818
  Transmission Date: 20090109
  Serious: Yes (Other)
  Sender: FDA-Public Use
  Company Number: CA-PFIZER INC-2008069534

PATIENT
  Sex: Male

DRUGS (1)
  1. CADUET [Suspect]
     Route: 048

REACTIONS (5)
  - HEADACHE [None]
  - HEART RATE DECREASED [None]
  - HEART RATE IRREGULAR [None]
  - HYPOTENSION [None]
  - MALAISE [None]
